FAERS Safety Report 5845736-0 (Version None)
Quarter: 2008Q3

REPORT INFORMATION
  Report Type: 
  Country: None (occurrence: None)
  Receive Date: 20080814
  Receipt Date: 20080808
  Transmission Date: 20090109
  Serious: Yes (Other)
  Sender: FDA-Public Use
  Company Number: PHEH2008US05899

PATIENT
  Sex: Female

DRUGS (1)
  1. ENABLEX [Suspect]
     Indication: HYPERTONIC BLADDER
     Dosage: 7.5 MG, QD
     Dates: start: 20070601

REACTIONS (15)
  - BLINDNESS UNILATERAL [None]
  - CONFUSIONAL STATE [None]
  - DIZZINESS [None]
  - DRY MOUTH [None]
  - EMOTIONAL DISORDER [None]
  - EYE SWELLING [None]
  - INSOMNIA [None]
  - OPTIC ISCHAEMIC NEUROPATHY [None]
  - POLYURIA [None]
  - PRURITUS [None]
  - RETINAL DISORDER [None]
  - SKIN DISORDER [None]
  - SWELLING FACE [None]
  - TREMOR [None]
  - VISION BLURRED [None]
